FAERS Safety Report 20487007 (Version 2)
Quarter: 2022Q2

REPORT INFORMATION
  Report Type: Spontaneous
  Country: BR (occurrence: BR)
  Receive Date: 20220217
  Receipt Date: 20220414
  Transmission Date: 20220721
  Serious: Yes (Other)
  Sender: FDA-Public Use
  Company Number: BR-SA-SAC20211110001168

PATIENT
  Age: 5 Year
  Sex: Male
  Weight: 21 kg

DRUGS (3)
  1. LARONIDASE [Suspect]
     Active Substance: LARONIDASE
     Indication: Mucopolysaccharidosis I
     Dosage: 0.58 DOSAGE FORM, QW
     Route: 042
  2. LARONIDASE [Suspect]
     Active Substance: LARONIDASE
     Dosage: UNK UNK, QW
     Route: 042
     Dates: start: 20201127
  3. LARONIDASE [Suspect]
     Active Substance: LARONIDASE
     Dosage: 3 DOSAGE FORM, QW
     Route: 042
     Dates: start: 20191101

REACTIONS (9)
  - Respiratory distress [Recovered/Resolved]
  - Unevaluable event [Unknown]
  - Drug hypersensitivity [Recovering/Resolving]
  - Skin plaque [Recovered/Resolved]
  - Erythema [Recovered/Resolved]
  - Dyspnoea [Recovered/Resolved]
  - Heart rate decreased [Recovered/Resolved]
  - Blood pressure decreased [Recovered/Resolved]
  - Urticaria [Unknown]

NARRATIVE: CASE EVENT DATE: 20200101
